FAERS Safety Report 9624684 (Version 2)
Quarter: 2013Q4

REPORT INFORMATION
  Report Type: Spontaneous
  Country: DE (occurrence: None)
  Receive Date: 20131010
  Receipt Date: 20131203
  Transmission Date: 20140711
  Serious: Yes (Hospitalization)
  Sender: FDA-Public Use
  Company Number: 2013MPI00566

PATIENT
  Sex: Male
  Weight: 63 kg

DRUGS (9)
  1. BRENTUXIMAB VEDOTIN (BRENTUXIMAB VEDOTIN) INJECTION [Suspect]
     Indication: HODGKIN^S DISEASE
     Dosage: 1.8 MG/KG, QCYCLE, INTRAVENEOUS
     Route: 042
     Dates: start: 20130820, end: 20130910
  2. ETOPOSIDE [Suspect]
     Indication: HODGKIN^S DISEASE
     Dosage: 150 MG/M2, QCYCLE, INTRAVENOUS
     Route: 042
     Dates: start: 20130821, end: 20130913
  3. CYCLOPHOSPHAMIDE [Suspect]
     Indication: HODGKIN^S DISEASE
     Dosage: 1250 MG/M2, QCYCLE, INTRAVENOUS
     Route: 042
     Dates: start: 20130911
  4. DOXORUBICIN [Suspect]
     Indication: HODGKIN^S DISEASE
     Dosage: 40MG/M2, QCYCLE, INTRAVENOUS
     Route: 042
     Dates: start: 20130821, end: 20130911
  5. DACARBAZINE (DACARBAZINE) [Suspect]
     Indication: HODGKIN^S DISEASE
     Dosage: 250 MG/M2, QCYCLE, ORAL
     Route: 048
     Dates: start: 20130822, end: 20130913
  6. DEXAMETHASONE (DEXAMETHASONE) [Suspect]
     Indication: HODGKIN^S DISEASE
     Dosage: 40 MG, QCYCLE, ORAL
     Route: 048
     Dates: start: 20130821, end: 20130914
  7. ACICLOVIR (ACICLOVIR SODIUM) [Concomitant]
  8. COTRIM FORTE EU RHO (SULFAMETHOXAZOLE, TRIMETHOPRIUM) [Concomitant]
  9. PANTOZOL (PANTOPRAZOLE SODIUM) [Concomitant]

REACTIONS (6)
  - Lobar pneumonia [None]
  - Neutropenia [None]
  - Sinus tachycardia [None]
  - Diarrhoea [None]
  - Abdominal pain [None]
  - Clostridium test [None]
